FAERS Safety Report 8299073-8 (Version None)
Quarter: 2012Q2

REPORT INFORMATION
  Report Type: 
  Country: None (occurrence: None)
  Receive Date: 20120419
  Receipt Date: 20120410
  Transmission Date: 20120825
  Serious: Yes (Hospitalization)
  Sender: FDA-Public Use
  Company Number: NL-MILLENNIUM PHARMACEUTICALS, INC.-2012-02493

PATIENT

DRUGS (1)
  1. VELCADE [Suspect]
     Indication: MULTIPLE MYELOMA
     Route: 065

REACTIONS (2)
  - PYREXIA [None]
  - OROPHARYNGEAL PAIN [None]
